FAERS Safety Report 12411292 (Version 2)
Quarter: 2016Q3

REPORT INFORMATION
  Report Type: Spontaneous
  Country: FI (occurrence: FI)
  Receive Date: 20160527
  Receipt Date: 20160707
  Transmission Date: 20161109
  Serious: Yes (Hospitalization, Other)
  Sender: FDA-Public Use
  Company Number: FI-AMGEN-FINSP2015008218

PATIENT
  Age: 40 Year
  Sex: Female

DRUGS (6)
  1. TREXAN                             /00113801/ [Concomitant]
     Active Substance: METHOTREXATE SODIUM
     Indication: RHEUMATOID ARTHRITIS
     Dosage: 20 MG, UNK
  2. LOSATRIX [Concomitant]
     Active Substance: LOSARTAN POTASSIUM
     Indication: HYPERTENSION
     Dosage: 50 MG, 1X/DAY
  3. FOLIC ACID. [Concomitant]
     Active Substance: FOLIC ACID
     Dosage: UNK
  4. ENBREL [Suspect]
     Active Substance: ETANERCEPT
     Indication: RHEUMATOID ARTHRITIS
     Dosage: 50 MG, WEEKLY
     Route: 058
     Dates: start: 2008, end: 20141112
  5. BURANA [Concomitant]
     Active Substance: IBUPROFEN
     Dosage: UNK, AS NEEDED
  6. METOJECT [Concomitant]
     Active Substance: METHOTREXATE SODIUM
     Indication: RHEUMATOID ARTHRITIS
     Dosage: 20 MG, WEEKLY
     Route: 058

REACTIONS (20)
  - Migraine [Recovering/Resolving]
  - Eyelid oedema [Unknown]
  - Cold sweat [Unknown]
  - Headache [Unknown]
  - Blindness [Recovering/Resolving]
  - Nausea [Unknown]
  - Sensory disturbance [Unknown]
  - Chromatopsia [Recovered/Resolved]
  - Paralysis [Unknown]
  - Neurosarcoidosis [Unknown]
  - Paraesthesia [Unknown]
  - Hypoaesthesia [Unknown]
  - Musculoskeletal stiffness [Unknown]
  - Diplopia [Unknown]
  - Optic neuritis [Not Recovered/Not Resolved]
  - Brain scan abnormal [Unknown]
  - Eye discharge [Recovered/Resolved]
  - Pyrexia [Unknown]
  - Eye movement disorder [Unknown]
  - Hypoaesthesia [Unknown]

NARRATIVE: CASE EVENT DATE: 20141019
